FAERS Safety Report 4815121-9 (Version None)
Quarter: 2005Q4

REPORT INFORMATION
  Report Type: 
  Country: None (occurrence: None)
  Receive Date: 20051028
  Receipt Date: 20050810
  Transmission Date: 20060501
  Serious: Yes (Disabling)
  Sender: FDA-Public Use
  Company Number: 200517459GDDC

PATIENT
  Age: 67 Year
  Sex: Male
  Weight: 99 kg

DRUGS (8)
  1. LANTUS [Suspect]
     Indication: DIABETES MELLITUS INSULIN-DEPENDENT
     Route: 058
     Dates: start: 20030408
  2. ACTRAPID [Concomitant]
     Indication: DIABETES MELLITUS INSULIN-DEPENDENT
     Dates: start: 19990927
  3. PAROXETINE HCL [Concomitant]
     Indication: DEPRESSION
     Dates: start: 19990303
  4. LISINOPRIL [Concomitant]
     Indication: HYPERTENSION
     Dates: start: 20000818
  5. DIAZEPAM [Concomitant]
     Indication: ANXIETY
     Dates: start: 20010820
  6. ATORVASTATIN CALCIUM [Concomitant]
     Indication: HYPERCHOLESTEROLAEMIA
     Dates: start: 20010820
  7. BENDROFLUAZIDE [Concomitant]
     Indication: HYPERTENSION
     Dates: start: 20000902
  8. RADEDORM [Concomitant]
     Indication: INSOMNIA
     Dates: start: 19950509

REACTIONS (2)
  - CELLULITIS [None]
  - SKIN ULCER [None]
